FAERS Safety Report 8607003-1 (Version None)
Quarter: 2012Q3

REPORT INFORMATION
  Report Type: 
  Country: None (occurrence: None)
  Receive Date: 20120820
  Receipt Date: 20120803
  Transmission Date: 20120928
  Serious: Yes (Hospitalization, Other)
  Sender: FDA-Public Use
  Company Number: PHHY2010US26135

PATIENT
  Sex: Male
  Weight: 100 kg

DRUGS (10)
  1. GLEEVEC [Suspect]
     Dosage: 400 MG, UNK
     Route: 048
     Dates: start: 20110525
  2. GLEEVEC [Suspect]
     Dosage: 400 MG, UNK
     Route: 048
     Dates: start: 20090910
  3. WARFARIN SODIUM [Concomitant]
     Dosage: 5 MG, UNK
     Route: 048
  4. ATENOLOL [Concomitant]
     Dosage: 25 MG, QHS
     Route: 048
  5. FEXOFENADINE [Concomitant]
     Dosage: 180 MG, UNK
     Route: 048
  6. NOVOLOG [Concomitant]
     Route: 058
  7. GLEEVEC [Suspect]
     Dosage: 400 MG, QD
     Route: 048
  8. UROXATRAL [Concomitant]
     Dosage: 10 MG, UNK
     Route: 048
  9. GLEEVEC [Suspect]
     Indication: CHRONIC MYELOID LEUKAEMIA
     Dosage: 400 MG, QD
     Route: 048
     Dates: start: 20090901
  10. COUMADIN [Concomitant]

REACTIONS (20)
  - NASAL CONGESTION [None]
  - DYSPNOEA [None]
  - NEOPLASM MALIGNANT [None]
  - OEDEMA PERIPHERAL [None]
  - PYREXIA [None]
  - BACK PAIN [None]
  - MALAISE [None]
  - BLAST CRISIS IN MYELOGENOUS LEUKAEMIA [None]
  - WEIGHT DECREASED [None]
  - DIABETES MELLITUS INADEQUATE CONTROL [None]
  - RHINITIS ALLERGIC [None]
  - DECREASED APPETITE [None]
  - SINUS CONGESTION [None]
  - CHRONIC MYELOID LEUKAEMIA [None]
  - ASTHMA [None]
  - THROMBOSIS [None]
  - WHEEZING [None]
  - CHILLS [None]
  - VEIN DISORDER [None]
  - INFECTION [None]
